FAERS Safety Report 7941693-1 (Version None)
Quarter: 2011Q4

REPORT INFORMATION
  Report Type: 
  Country: None (occurrence: None)
  Receive Date: 20111128
  Receipt Date: 20111128
  Transmission Date: 20120403
  Serious: No
  Sender: FDA-Public Use
  Company Number: None

PATIENT

DRUGS (1)
  1. FLAGYL [Suspect]
     Indication: DIVERTICULITIS
     Dosage: 3 TIMES A DAY11-21
     Dates: start: 20111121, end: 20111130

REACTIONS (4)
  - MALAISE [None]
  - NAUSEA [None]
  - PRODUCT QUALITY ISSUE [None]
  - DYSGEUSIA [None]
